FAERS Safety Report 25120150 (Version 1)
Quarter: 2025Q1

REPORT INFORMATION
  Report Type: Spontaneous
  Country: US (occurrence: None)
  Receive Date: 20250325
  Receipt Date: 20250325
  Transmission Date: 20250409
  Serious: Yes (Hospitalization)
  Sender: FDA-CTU
  Company Number: None

PATIENT
  Sex: Male

DRUGS (1)
  1. AMBRISENTAN [Suspect]
     Active Substance: AMBRISENTAN
     Indication: Hypoplastic left heart syndrome
     Dosage: FREQUENCY : DAILY;?OTHER ROUTE : BY G TUBE;?
     Route: 050
     Dates: start: 20230823

REACTIONS (1)
  - Heart transplant [None]
